FAERS Safety Report 10250024 (Version 1)
Quarter: 2014Q2

REPORT INFORMATION
  Report Type: Spontaneous
  Country: US (occurrence: US)
  Receive Date: 20140620
  Receipt Date: 20140620
  Transmission Date: 20141212
  Serious: No
  Sender: FDA-Public Use
  Company Number: US-BRISTOL-MYERS SQUIBB COMPANY-20586145

PATIENT
  Age: 76 Year
  Sex: Female
  Weight: 56.69 kg

DRUGS (1)
  1. ELIQUIS [Suspect]
     Indication: ATRIAL FIBRILLATION
     Dates: start: 20140318

REACTIONS (3)
  - Chest pain [Unknown]
  - Swelling [Unknown]
  - Pruritus [Unknown]
